FAERS Safety Report 4456293-8 (Version None)
Quarter: 2004Q3

REPORT INFORMATION
  Report Type: 
  Country: None (occurrence: None)
  Receive Date: 20040917
  Receipt Date: 20040826
  Transmission Date: 20050211
  Serious: Yes (Hospitalization)
  Sender: FDA-Public Use
  Company Number: USA040876617

PATIENT
  Age: 45 Year
  Sex: Male

DRUGS (2)
  1. HUMULIN N [Suspect]
     Dates: start: 20000101
  2. HUMULIN R [Suspect]
     Dates: start: 20000101

REACTIONS (5)
  - CELLULITIS [None]
  - HYPOGLYCAEMIA [None]
  - KELOID SCAR [None]
  - PAIN [None]
  - PHARMACEUTICAL PRODUCT COMPLAINT [None]
